FAERS Safety Report 7972257-1 (Version None)
Quarter: 2011Q4

REPORT INFORMATION
  Report Type: 
  Country: None (occurrence: None)
  Receive Date: 20111213
  Receipt Date: 20111203
  Transmission Date: 20120403
  Serious: Yes (Hospitalization)
  Sender: FDA-Public Use
  Company Number: US-BIOGENIDEC-2011BI023736

PATIENT
  Age: 58 Year
  Sex: Male

DRUGS (4)
  1. AVONEX [Concomitant]
     Indication: MULTIPLE SCLEROSIS
     Route: 030
  2. TYSABRI [Suspect]
     Indication: MULTIPLE SCLEROSIS
     Route: 042
     Dates: start: 20110301, end: 20110329
  3. TYSABRI [Suspect]
     Route: 042
     Dates: start: 20061107, end: 20100420
  4. TYSABRI [Suspect]
     Route: 042

REACTIONS (1)
  - INFECTED SKIN ULCER [None]
